FAERS Safety Report 14257454 (Version 1)
Quarter: 2017Q4

REPORT INFORMATION
  Report Type: Spontaneous
  Country: CA (occurrence: CA)
  Receive Date: 20171207
  Receipt Date: 20171207
  Transmission Date: 20180321
  Serious: Yes (Other)
  Sender: FDA-Public Use
  Company Number: CA-VISTAPHARM, INC.-VER201711-001222

PATIENT
  Age: 73 Year
  Sex: Female

DRUGS (6)
  1. PHENYTOIN. [Concomitant]
     Active Substance: PHENYTOIN
  2. QUINAPRIL. [Concomitant]
     Active Substance: QUINAPRIL
  3. AMLODIPINE [Concomitant]
     Active Substance: AMLODIPINE BESYLATE
  4. OXYCODONE [Suspect]
     Active Substance: OXYCODONE
     Indication: ARTHRALGIA
  5. OXYCODONE [Suspect]
     Active Substance: OXYCODONE
     Indication: ARTHRALGIA
  6. ATROVASTATIN [Concomitant]
     Active Substance: ATORVASTATIN CALCIUM

REACTIONS (1)
  - Erythema multiforme [Recovering/Resolving]
